FAERS Safety Report 10459159 (Version 1)
Quarter: 2014Q3

REPORT INFORMATION
  Report Type: Spontaneous
  Country: AT (occurrence: AT)
  Receive Date: 20140917
  Receipt Date: 20140917
  Transmission Date: 20150326
  Serious: Yes (Other)
  Sender: FDA-Public Use
  Company Number: AT-JNJFOC-20140908794

PATIENT

DRUGS (1)
  1. INFLIXIMAB, RECOMBINANT [Suspect]
     Active Substance: INFLIXIMAB
     Indication: BEHCET^S SYNDROME
     Route: 042

REACTIONS (6)
  - Angioedema [Unknown]
  - Off label use [Unknown]
  - Drug ineffective [Unknown]
  - Demyelination [Unknown]
  - Disseminated tuberculosis [Unknown]
  - Adverse event [Unknown]
